FAERS Safety Report 7346585-7 (Version None)
Quarter: 2011Q1

REPORT INFORMATION
  Report Type: 
  Country: None (occurrence: None)
  Receive Date: 20110301
  Receipt Date: 20110221
  Transmission Date: 20110831
  Serious: Yes (Disabling)
  Sender: FDA-Public Use
  Company Number: OSCN-NO-1005S-0132

PATIENT
  Age: 41 Year
  Sex: Female

DRUGS (33)
  1. VANCOMYCIN (VANCOMYCIN ^ALPHARMA^) [Concomitant]
  2. INNOHEP [Concomitant]
  3. ATORVASTATIN CALCIUM [Concomitant]
  4. VITAMIN C (NYCOPLUS C) [Concomitant]
  5. PLAVIX [Concomitant]
  6. STOLIDEM (STILNOCT) [Concomitant]
  7. FOLIC ACID [Concomitant]
  8. WARFARIN (MAREVAN) [Concomitant]
  9. ATORVASTATIN CALCIUM [Concomitant]
  10. VANCOMYCIN (VANCOMYCIN ^HOSPIRA^) [Concomitant]
  11. GLYCERYL TRINITRATE (NITROLINGUAL) [Concomitant]
  12. PARACETAMOL (PINEX) [Concomitant]
  13. VITAMIN B COMPLEX, PLAIN (B-COMBIN STARK) [Concomitant]
  14. MAGNEVIST [Suspect]
     Indication: PRODUCT USED FOR UNKNOWN INDICATION
     Dosage: SINGLE DOSE, I.V.
     Route: 042
     Dates: start: 20071001, end: 20071001
  15. METOPROLOL (SELO-ZOK) [Concomitant]
  16. RAMIPRIL [Concomitant]
  17. CIPROFLOXACIN [Concomitant]
  18. METOCLOPRAMIDE HYDROCHLORIDE [Concomitant]
  19. MELATONNI (CIRCADIN) [Concomitant]
  20. OMNISCAN [Suspect]
     Indication: TRANSPLANT EVALUATION
     Dosage: 20 ML, SINGLE DOSE, I.V.
     Route: 042
     Dates: start: 20060313, end: 20060313
  21. GADOVIST [Suspect]
     Indication: PRODUCT USED FOR UNKNOWN INDICATION
     Dosage: SINGLE DOSE, I.V.
     Route: 042
     Dates: start: 20090901, end: 20090901
  22. TRAMADOL (TRADOLAN) [Concomitant]
  23. LANTHANUM CARBONATE (FOSRENOL) [Concomitant]
  24. RENAGEL [Concomitant]
  25. PARICALCITOL (ZEMPLAR) [Concomitant]
  26. CINACALCET (MIMPARA) [Concomitant]
  27. TRANDATE [Concomitant]
  28. CODEINE [Concomitant]
  29. SACCHARATED IRON OXIDE (VENOFER) [Concomitant]
  30. ARANESP [Concomitant]
  31. KETOBEMIDONE (KETOGAN) [Concomitant]
  32. CODEINE, COMBINATIONS EXCL. PSYCHOLEPTICS (FORTAMOL) [Concomitant]
  33. METOCLOPRAMIDE (EMPERAL) [Concomitant]

REACTIONS (11)
  - FIBROSIS [None]
  - OEDEMA PERIPHERAL [None]
  - GAIT DISTURBANCE [None]
  - SKIN DISCOLOURATION [None]
  - ARTHRALGIA [None]
  - SPIDER VEIN [None]
  - TENDON DISORDER [None]
  - SKIN TIGHTNESS [None]
  - MUSCLE DISORDER [None]
  - LOCAL SWELLING [None]
  - SKIN HYPERTROPHY [None]
